FAERS Safety Report 13650622 (Version 2)
Quarter: 2017Q3

REPORT INFORMATION
  Report Type: Spontaneous
  Country: JP (occurrence: JP)
  Receive Date: 20170614
  Receipt Date: 20170707
  Transmission Date: 20171127
  Serious: Yes (Hospitalization, Other)
  Sender: FDA-Public Use
  Company Number: JP-ROCHE-1950246

PATIENT
  Age: 68 Year
  Sex: Male
  Weight: 46 kg

DRUGS (5)
  1. PREDNISOLONE. [Concomitant]
     Active Substance: PREDNISOLONE
     Route: 065
     Dates: start: 20130920
  2. ORENCIA [Suspect]
     Active Substance: ABATACEPT
     Indication: PRODUCT USED FOR UNKNOWN INDICATION
     Dosage: FRACTIONATION DOSE UNCERTAIN FREQUENCY AND DOSE INTERVAL UNCERTAINTY
     Route: 058
     Dates: start: 20151120, end: 20170217
  3. ALENDRONATE [Concomitant]
     Active Substance: ALENDRONATE SODIUM
     Dosage: DOSAGE IS UNCERTAIN.
     Route: 065
  4. ACTEMRA [Suspect]
     Active Substance: TOCILIZUMAB
     Indication: RHEUMATOID VASCULITIS
     Route: 058
     Dates: start: 20170217, end: 20170512
  5. AZULFIDINE EN-TABS [Concomitant]
     Active Substance: SULFASALAZINE
     Dosage: DOSAGE IS UNCERTAIN.
     Route: 065
     Dates: start: 20150502

REACTIONS (2)
  - Interstitial lung disease [Recovering/Resolving]
  - Bronchitis chronic [Unknown]

NARRATIVE: CASE EVENT DATE: 20170512
